FAERS Safety Report 10377318 (Version 1)
Quarter: 2014Q3

REPORT INFORMATION
  Report Type: Spontaneous
  Country: US (occurrence: US)
  Receive Date: 20140812
  Receipt Date: 20140812
  Transmission Date: 20150326
  Serious: Yes (Hospitalization)
  Sender: FDA-Public Use
  Company Number: PHHY2014US095870

PATIENT
  Age: 69 Year
  Sex: Female

DRUGS (7)
  1. METOPROLOL [Suspect]
     Active Substance: METOPROLOL
     Dosage: 10 MG, UNK
     Route: 042
  2. BENZODIAZEPINES [Suspect]
     Active Substance: BENZODIAZEPINE
  3. PACLITAXEL. [Suspect]
     Active Substance: PACLITAXEL
  4. NICARDIPINE [Suspect]
     Active Substance: NICARDIPINE
     Route: 041
  5. EPINEPHRINE. [Suspect]
     Active Substance: EPINEPHRINE
  6. FENTANYL. [Suspect]
     Active Substance: FENTANYL
     Indication: PAIN
  7. MEPERIDINE [Suspect]
     Active Substance: MEPERIDINE

REACTIONS (11)
  - Speech disorder [Recovering/Resolving]
  - Serotonin syndrome [Recovering/Resolving]
  - Mean arterial pressure decreased [Recovering/Resolving]
  - Body temperature increased [Recovering/Resolving]
  - Myoclonus [Recovering/Resolving]
  - Heart rate decreased [Recovering/Resolving]
  - Blood pressure systolic increased [Recovering/Resolving]
  - Mental status changes [Recovering/Resolving]
  - Feeling abnormal [Recovering/Resolving]
  - Abnormal behaviour [Recovering/Resolving]
  - Clonus [Recovering/Resolving]
